FAERS Safety Report 15048184 (Version 2)
Quarter: 2018Q4

REPORT INFORMATION
  Report Type: Report from Study
  Country: US (occurrence: US)
  Receive Date: 20180622
  Receipt Date: 20181204
  Transmission Date: 20190204
  Serious: Yes (Other)
  Sender: FDA-Public Use
  Company Number: US-ROCHE-2143501

PATIENT
  Sex: Male

DRUGS (1)
  1. OCREVUS [Suspect]
     Active Substance: OCRELIZUMAB
     Indication: MULTIPLE SCLEROSIS
     Dosage: ONGOING: NO
     Route: 065
     Dates: start: 20171102, end: 20171116

REACTIONS (3)
  - Intentional product use issue [Unknown]
  - Off label use [Unknown]
  - Urinary tract infection [Not Recovered/Not Resolved]
